FAERS Safety Report 7713511-8 (Version None)
Quarter: 2011Q3

REPORT INFORMATION
  Report Type: 
  Country: None (occurrence: None)
  Receive Date: 20110826
  Receipt Date: 20110819
  Transmission Date: 20111222
  Serious: Yes (Other)
  Sender: FDA-Public Use
  Company Number: US-ABBOTT-11P-163-0847950-00

PATIENT
  Sex: Female
  Weight: 55.388 kg

DRUGS (2)
  1. HUMIRA [Suspect]
     Indication: PSORIASIS
     Route: 058
     Dates: start: 20080401
  2. METHOTREXATE [Concomitant]
     Indication: PSORIASIS

REACTIONS (9)
  - ANXIETY [None]
  - CONVULSION [None]
  - HEAD INJURY [None]
  - DIZZINESS [None]
  - FEELING ABNORMAL [None]
  - DISORIENTATION [None]
  - ABNORMAL SENSATION IN EYE [None]
  - WEIGHT DECREASED [None]
  - DECREASED APPETITE [None]
